FAERS Safety Report 4396141-8 (Version None)
Quarter: 2004Q3

REPORT INFORMATION
  Report Type: 
  Country: None (occurrence: None)
  Receive Date: 20040709
  Receipt Date: 20040624
  Transmission Date: 20050211
  Serious: Yes (Other)
  Sender: FDA-Public Use
  Company Number: A0515943A

PATIENT
  Age: 44 Year
  Sex: Male

DRUGS (2)
  1. NICORETTE [Suspect]
     Indication: EX-SMOKER
     Dosage: 4 MG/ VARIABLE DOSE/ TRANSBUCCAL
     Route: 002
     Dates: start: 20031101
  2. BUPROPION HYDROCHLORIDE [Concomitant]

REACTIONS (4)
  - ANGER [None]
  - DEPENDENCE [None]
  - LIBIDO DECREASED [None]
  - WEIGHT INCREASED [None]
